FAERS Safety Report 26107866 (Version 1)
Quarter: 2025Q4

REPORT INFORMATION
  Report Type: Spontaneous
  Country: EU (occurrence: EU)
  Receive Date: 20251201
  Receipt Date: 20251201
  Transmission Date: 20260117
  Serious: Yes (Other)
  Sender: ACCORD
  Company Number: None

PATIENT
  Age: 37 Year
  Sex: Male
  Weight: 72 kg

DRUGS (17)
  1. FLUOROURACIL [Suspect]
     Active Substance: FLUOROURACIL
     Indication: Oesophageal adenocarcinoma
     Dosage: STRENGTH: 50 MG/ML, 2400MG/SQUARE METER
     Dates: start: 20250829, end: 20250831
  2. OXALIPLATIN [Suspect]
     Active Substance: OXALIPLATIN
     Indication: Oesophageal adenocarcinoma
     Dosage: STRENGTH: 5 MG/ML, 85MG/SQUARE METER
     Dates: start: 20250829, end: 20250829
  3. HALDOL [Suspect]
     Active Substance: HALOPERIDOL
     Indication: Prophylaxis of nausea and vomiting
     Dosage: STRENGTH: 5 MG/ML, SOLUTION FOR INJECTION IN AMPOULE
     Dates: start: 20250926, end: 20250930
  4. ZOLBETUXIMAB [Suspect]
     Active Substance: ZOLBETUXIMAB
     Indication: Oesophageal adenocarcinoma
     Dosage: STRENGTH: 100 MG, 800MG/SQUARE METER
     Dates: start: 20250828, end: 20250828
  5. VALPROATE SODIUM [Concomitant]
     Active Substance: VALPROATE SODIUM
     Indication: Epilepsy
     Dosage: STRENGTH: 500 MG, SCORED PROLONGED-RELEASE FILM-COATED  TABLET
     Dates: start: 2000
  6. PANTOPRAZOLE [Concomitant]
     Active Substance: PANTOPRAZOLE
     Indication: Product used for unknown indication
  7. FLUOROURACIL [Suspect]
     Active Substance: FLUOROURACIL
     Indication: Oesophageal adenocarcinoma
     Dosage: STRENGTH: 50 MG/ML,  400MG/SQUARE METER
     Dates: start: 20250829, end: 20250829
  8. FLUOROURACIL [Suspect]
     Active Substance: FLUOROURACIL
     Indication: Oesophageal adenocarcinoma
     Dosage: STRENGTH: 50 MG/ML, 400MG/SQUARE METER
     Dates: start: 20250911, end: 20250911
  9. FLUOROURACIL [Suspect]
     Active Substance: FLUOROURACIL
     Indication: Oesophageal adenocarcinoma
     Dosage: STRENGTH: 50 MG/ML, 2400MG/SQUARE METER
     Dates: start: 20250911, end: 20250913
  10. FLUOROURACIL [Suspect]
     Active Substance: FLUOROURACIL
     Indication: Oesophageal adenocarcinoma
     Dosage: STRENGTH: 50 MG/ML, 400MG/SQUARE METER
     Dates: start: 20250925, end: 20250925
  11. FLUOROURACIL [Suspect]
     Active Substance: FLUOROURACIL
     Indication: Oesophageal adenocarcinoma
     Dosage: STRENGTH: 50 MG/ML, 2400MG/SQUARE METER
     Dates: start: 20250925, end: 20250927
  12. OXALIPLATIN [Suspect]
     Active Substance: OXALIPLATIN
     Indication: Oesophageal adenocarcinoma
     Dosage: STRENGTH: 5 MG/ML, 85MG/SQUARE METER
     Dates: start: 20250911, end: 20250911
  13. OXALIPLATIN [Suspect]
     Active Substance: OXALIPLATIN
     Indication: Oesophageal adenocarcinoma
     Dosage: STRENGTH: 5 MG/ML, 85MG/SQUARE METER
     Dates: start: 20250925, end: 20250925
  14. HALDOL [Suspect]
     Active Substance: HALOPERIDOL
     Indication: Prophylaxis of nausea and vomiting
     Dosage: STRENGTH: 5 MG/ML, SOLUTION FOR INJECTION IN AMPOULE
     Dates: start: 20251001, end: 20251002
  15. HALDOL [Suspect]
     Active Substance: HALOPERIDOL
     Indication: Prophylaxis of nausea and vomiting
     Dosage: STRENGTH: 5 MG/ML, SOLUTION FOR INJECTION IN AMPOULE
     Dates: start: 20251003, end: 20251015
  16. ZOLBETUXIMAB [Suspect]
     Active Substance: ZOLBETUXIMAB
     Indication: Oesophageal adenocarcinoma
     Dosage: STRENGTH: 100 MG, 400 MG/SQUARE METER
     Dates: start: 20250911, end: 20250911
  17. ZOLBETUXIMAB [Suspect]
     Active Substance: ZOLBETUXIMAB
     Indication: Oesophageal adenocarcinoma
     Dosage: STRENGTH: 100 MG, 400MG/SQUARE METER
     Dates: start: 20250925, end: 20250925

REACTIONS (1)
  - Facial paralysis [Not Recovered/Not Resolved]

NARRATIVE: CASE EVENT DATE: 20251011
